FAERS Safety Report 9761304 (Version 1)
Quarter: 2013Q4

REPORT INFORMATION
  Report Type: Spontaneous
  Country: IN (occurrence: None)
  Receive Date: 20131212
  Receipt Date: 20131212
  Transmission Date: 20140711
  Serious: Yes (Hospitalization)
  Sender: FDA-Public Use
  Company Number: AUR-APL-2013-10440

PATIENT
  Age: 30 Year
  Sex: Male

DRUGS (16)
  1. LEVETIRACETAM (LEVETIRACETAM) [Suspect]
     Indication: STATUS EPILEPTICUS
  2. PHENYTOIN (PHENYTOIN) [Suspect]
  3. TOPIRAMATE (TOPIRAMATE) [Suspect]
     Indication: STATUS EPILEPTICUS
     Dosage: 200 MG (200 MG, 1 IN 1 D), UNKNOWN
  4. LORAZEPAM (LORAZEPAM) [Suspect]
     Indication: STATUS EPILEPTICUS
     Dosage: (4 MG), INTRAVENOUS
     Route: 042
  5. PROPOFOL [Suspect]
     Dosage: 50 MG BOLUS FOLLOWED BY 50
  6. SODIUM VALPROATE [Suspect]
     Indication: STATUS EPILEPTICUS
     Dosage: (1500 MG), UNKNOWN?
  7. MIDAZOLAM (MIDAZOLAM) [Suspect]
     Indication: STATUS EPILEPTICUS
  8. CARBAMAZEPINE (CARBAMAZEPINE) [Suspect]
     Indication: STATUS EPILEPTICUS
     Dosage: 1200 MG (1200 MG, 1 IN 1)
  9. CLOBAZAM (CLOBAZAM) [Suspect]
     Indication: STATUS EPILEPTICUS
     Dosage: 40 MG (40 MG, 1 IN 1 D), UNKNOWN
  10. LACOSAMIDE (LACOSAMIDE) [Suspect]
     Indication: STATUS EPILEPTICUS
     Dosage: 20 MG (20 MG, 1 IN 1D), UNKNOWN
  11. ZONISAMIDE [Suspect]
     Dosage: 100 MG (100 MG, 1 IN 1 D), UNKNOWN
  12. ACYCLOVIR [Concomitant]
  13. CEFTRIAXONE (CEFTRIAXONE) [Concomitant]
  14. THIOPENTONE SODIUM (THIOPENTAL SODIUM) [Concomitant]
  15. GLUCOSE (GLUCOSE) [Concomitant]
  16. THIAMINE (THIAMINE) [Concomitant]

REACTIONS (7)
  - Status epilepticus [None]
  - Pyrexia [None]
  - Sinus bradycardia [None]
  - Nodal rhythm [None]
  - Jugular vein thrombosis [None]
  - Subclavian vein thrombosis [None]
  - Drug ineffective [None]
